FAERS Safety Report 7405979-1 (Version None)
Quarter: 2011Q2

REPORT INFORMATION
  Report Type: 
  Country: None (occurrence: None)
  Receive Date: 20110411
  Receipt Date: 20110401
  Transmission Date: 20111010
  Serious: Yes (Hospitalization)
  Sender: FDA-Public Use
  Company Number: US-EISAI INC-E3810-04583-SPO-US

PATIENT
  Sex: Female
  Weight: 97 kg

DRUGS (2)
  1. ACIPHEX [Suspect]
     Route: 048
     Dates: start: 20010101
  2. ACIPHEX [Suspect]

REACTIONS (4)
  - H1N1 INFLUENZA [None]
  - PAINFUL RESPIRATION [None]
  - THROAT TIGHTNESS [None]
  - DRUG INEFFECTIVE [None]
